FAERS Safety Report 8581654-5 (Version None)
Quarter: 2012Q3

REPORT INFORMATION
  Report Type: 
  Country: None (occurrence: None)
  Receive Date: 20120809
  Receipt Date: 20120731
  Transmission Date: 20120928
  Serious: Yes (Hospitalization)
  Sender: FDA-Public Use
  Company Number: US-AMGEN-USANI2012043651

PATIENT
  Age: 54 Year
  Sex: Male
  Weight: 89.2 kg

DRUGS (9)
  1. CRESTOR [Concomitant]
     Indication: HYPERLIPIDAEMIA
     Dosage: 5 MG, QD
  2. TAXOL [Concomitant]
     Dosage: 1530 MG, UNK
     Dates: start: 20110413, end: 20110913
  3. ASPIRIN [Concomitant]
     Indication: ARTHRITIS
     Dosage: 81 MG, QD
  4. MOTRIN [Concomitant]
     Indication: PROCEDURAL PAIN
     Dosage: 400 MG, PRN
     Dates: start: 20110816
  5. CARBOPLATIN [Concomitant]
     Dosage: 3600 MG, UNK
     Dates: start: 20110413, end: 20110913
  6. DEXAMETHASONE [Concomitant]
     Indication: NAUSEA
     Dosage: 4 MG, BID
     Route: 048
     Dates: start: 20110913, end: 20110917
  7. PANITUMUMAB [Suspect]
     Indication: NON-SMALL CELL LUNG CANCER
     Dosage: 1500 MG, UNK
     Dates: start: 20110413, end: 20110913
  8. OXYCODONE HCL [Concomitant]
     Indication: OESOPHAGITIS
     Dosage: 5 MG, PRN
     Dates: start: 20110503
  9. ONDANSETRON [Concomitant]
     Dosage: 8 MG, QD
     Route: 048
     Dates: start: 20110913, end: 20110917

REACTIONS (1)
  - LUNG INFECTION [None]
